FAERS Safety Report 11681645 (Version 1)
Quarter: 2015Q4

REPORT INFORMATION
  Report Type: Spontaneous
  Country: US (occurrence: None)
  Receive Date: 20151028
  Receipt Date: 20151028
  Transmission Date: 20160304
  Serious: Yes (Disabling)
  Sender: FDA-Public Use
  Company Number: None

PATIENT
  Age: 80 Year
  Sex: Female

DRUGS (9)
  1. METFORMIN [Concomitant]
     Active Substance: METFORMIN HYDROCHLORIDE
  2. NITROFURANTION MACROCRYSTALS [Concomitant]
     Active Substance: NITROFURANTOIN
  3. CINNAMON. [Concomitant]
     Active Substance: CINNAMON
  4. OTC VITAMINS [Concomitant]
  5. MAGNESIUM [Concomitant]
     Active Substance: MAGNESIUM
  6. CIPROFLOXACIN. [Suspect]
     Active Substance: CIPROFLOXACIN
     Indication: URINARY TRACT INFECTION
     Dosage: 1
     Route: 048
     Dates: start: 20150320, end: 20151024
  7. METOPROLOL [Concomitant]
     Active Substance: METOPROLOL
  8. LEVOTHYROXINE. [Concomitant]
     Active Substance: LEVOTHYROXINE
  9. CRANBERRY TABLETS [Concomitant]

REACTIONS (4)
  - Tendon disorder [None]
  - Periarthritis [None]
  - Nervous system disorder [None]
  - Rash [None]

NARRATIVE: CASE EVENT DATE: 20150331
